FAERS Safety Report 7125596-0 (Version None)
Quarter: 2010Q4

REPORT INFORMATION
  Report Type: 
  Country: None (occurrence: None)
  Receive Date: 20101129
  Receipt Date: 20101116
  Transmission Date: 20110411
  Serious: Yes (Death)
  Sender: FDA-Public Use
  Company Number: GB-ELI_LILLY_AND_COMPANY-GB201010006965

PATIENT
  Age: 40 Year
  Sex: Male
  Weight: 65 kg

DRUGS (2)
  1. ZYPREXA [Suspect]
     Indication: PSYCHOTIC DISORDER
     Dosage: 5 MG, 2/D
     Route: 048
  2. FLUOXETINE [Concomitant]
     Indication: MENTAL DISORDER
     Dosage: 20 MG, DAILY (1/D)
     Route: 065

REACTIONS (5)
  - CONFUSIONAL STATE [None]
  - DYSARTHRIA [None]
  - HEPATIC STEATOSIS [None]
  - KETOACIDOSIS [None]
  - MALAISE [None]
